FAERS Safety Report 9834644 (Version 2)
Quarter: 2014Q1

REPORT INFORMATION
  Report Type: Report from Study
  Country: US (occurrence: US)
  Receive Date: 20140122
  Receipt Date: 20140224
  Transmission Date: 20141002
  Serious: Yes (Hospitalization, Other)
  Sender: FDA-Public Use
  Company Number: US-JNJFOC-20140107086

PATIENT
  Age: 44 Year
  Sex: Female
  Weight: 90.72 kg

DRUGS (12)
  1. SIMPONI [Suspect]
     Indication: RHEUMATOID ARTHRITIS
     Route: 058
     Dates: start: 20140108, end: 201401
  2. SIMPONI [Suspect]
     Indication: RHEUMATOID ARTHRITIS
     Route: 058
     Dates: start: 201306
  3. AVELOX [Suspect]
     Indication: UPPER RESPIRATORY TRACT INFECTION
     Route: 065
     Dates: start: 201310, end: 2013
  4. ADVIL [Suspect]
     Indication: ARTHRALGIA
     Route: 065
     Dates: start: 201401
  5. NAPROSYN [Suspect]
     Indication: ARTHRALGIA
     Route: 065
     Dates: start: 201402
  6. EPINEPHRINE [Suspect]
     Indication: ANAPHYLACTIC REACTION
     Route: 065
     Dates: start: 201402
  7. METHOTREXATE [Concomitant]
     Indication: RHEUMATOID ARTHRITIS
     Route: 048
     Dates: start: 2012
  8. ARMOUR THYROID [Concomitant]
     Route: 048
  9. FOLIC ACID [Concomitant]
     Indication: RHEUMATOID ARTHRITIS
     Route: 048
  10. CYCLOBENZAPRINE [Concomitant]
     Indication: MUSCLE RELAXANT THERAPY
     Dosage: AS NEEDED THREE TIMES A DAY
     Route: 048
  11. NEURONTIN [Concomitant]
     Route: 048
  12. AMITRIPTYLINE [Concomitant]
     Indication: SLEEP DISORDER
     Route: 048
     Dates: start: 2012

REACTIONS (3)
  - Asthma [Unknown]
  - Anaphylactic reaction [Recovered/Resolved]
  - Arthralgia [Unknown]
